FAERS Safety Report 4513292-5 (Version None)
Quarter: 2004Q4

REPORT INFORMATION
  Report Type: 
  Country: None (occurrence: None)
  Receive Date: 20041130
  Receipt Date: 20041123
  Transmission Date: 20050328
  Serious: Yes (Death, Hospitalization)
  Sender: FDA-Public Use
  Company Number: PHBS2004NL15786

PATIENT
  Age: 64 Year
  Sex: Female

DRUGS (6)
  1. NITROFURANAOINE [Suspect]
  2. ACENOCOUMAROL [Concomitant]
  3. PARACETAMOL [Concomitant]
  4. SIMVASTATIN [Concomitant]
  5. PAROXETINE HCL [Concomitant]
  6. LIORESAL [Suspect]
     Indication: MUSCLE SPASMS
     Route: 048

REACTIONS (5)
  - AORTIC OCCLUSION [None]
  - HEPATIC ENCEPHALOPATHY [None]
  - HEPATIC ENZYME INCREASED [None]
  - NAUSEA [None]
  - SOMNOLENCE [None]
